FAERS Safety Report 10095968 (Version 2)
Quarter: 2014Q2

REPORT INFORMATION
  Report Type: Spontaneous
  Country: US (occurrence: US)
  Receive Date: 20140422
  Receipt Date: 20140422
  Transmission Date: 20141212
  Serious: No
  Sender: FDA-Public Use
  Company Number: US-GILEAD-2013-0076283

PATIENT
  Age: 74 Year
  Sex: Male
  Weight: 92.63 kg

DRUGS (31)
  1. LETAIRIS [Suspect]
     Indication: PULMONARY ARTERIAL HYPERTENSION
     Dosage: 5 MG, UNK
     Dates: start: 20130516, end: 20130529
  2. FUROSEMIDE [Concomitant]
     Indication: FLUID RETENTION
  3. ASPIRIN [Concomitant]
  4. FLORAJEN 3 [Concomitant]
  5. VITAMIN B COMPLEX [Concomitant]
  6. CITRUCEL [Concomitant]
  7. GLIPIZIDE ER [Concomitant]
  8. FLUTICASONE PROPIONATE [Concomitant]
  9. ZAROXOLYN [Concomitant]
  10. PREDNISONE [Concomitant]
  11. BENADRYL                           /00000402/ [Concomitant]
  12. ACETYLCYSTEINE [Concomitant]
  13. PROMETHAZINE HCL [Concomitant]
  14. KEFLEX                             /00145501/ [Concomitant]
  15. TYLENOL W/CODEINE [Concomitant]
  16. OXYGEN [Concomitant]
  17. ADVAIR [Concomitant]
  18. OSTEO BI-FLEX [Concomitant]
  19. VITAMIN D                          /00107901/ [Concomitant]
  20. FOLIC ACID [Concomitant]
  21. MULTIVITAMINS [Concomitant]
  22. LIPITOR [Concomitant]
  23. OMEPRAZOLE [Concomitant]
  24. METROGEL [Concomitant]
  25. NITROSTAT [Concomitant]
  26. MUCINEX [Concomitant]
  27. EPLERENONE [Concomitant]
  28. ROPINIROLE [Concomitant]
  29. TREXALL [Concomitant]
  30. IRON [Concomitant]
  31. MULTAQ [Concomitant]

REACTIONS (2)
  - Swelling [Not Recovered/Not Resolved]
  - Oedema [Unknown]
